FAERS Safety Report 11112690 (Version 1)
Quarter: 2015Q2

REPORT INFORMATION
  Report Type: Spontaneous
  Country: US (occurrence: None)
  Receive Date: 20150513
  Receipt Date: 20150513
  Transmission Date: 20150821
  Serious: No
  Sender: FDA-Public Use
  Company Number: None

PATIENT
  Age: 46 Year
  Sex: Male

DRUGS (1)
  1. TESTOSTERONE 200MG/ML INJECTION WATSON [Suspect]
     Active Substance: TESTOSTERONE
     Indication: HYPOGONADISM
     Dates: start: 20150304

REACTIONS (1)
  - Product deposit [None]

NARRATIVE: CASE EVENT DATE: 20150306
